FAERS Safety Report 4818951-2 (Version None)
Quarter: 2005Q4

REPORT INFORMATION
  Report Type: 
  Country: None (occurrence: None)
  Receive Date: 20051101
  Receipt Date: 20051021
  Transmission Date: 20060501
  Serious: Yes (Life-Threatening, Hospitalization)
  Sender: FDA-Public Use
  Company Number: 2005144208

PATIENT
  Age: 62 Year
  Sex: Male

DRUGS (2)
  1. SPIRONOLACTONE [Suspect]
     Indication: HEPATIC CIRRHOSIS
     Dosage: 400 MG (100 MG, TWICE DAILY, INTERVAL: EVERY DAY), ORAL
     Route: 048
     Dates: end: 20050413
  2. FUROSEMIDE [Suspect]
     Indication: HEPATIC CIRRHOSIS
     Dosage: 80 MG (40 MG, TWICE DAILY, INTERVAL: EVERY DAY), ORAL
     Route: 048

REACTIONS (1)
  - HEPATIC ENCEPHALOPATHY [None]
